FAERS Safety Report 4425196-7 (Version None)
Quarter: 2004Q3

REPORT INFORMATION
  Report Type: 
  Country: None (occurrence: None)
  Receive Date: 20040719
  Receipt Date: 20030428
  Transmission Date: 20050211
  Serious: Yes (Hospitalization)
  Sender: FDA-Public Use
  Company Number: 172444

PATIENT
  Age: 65 Year
  Sex: Female
  Weight: 79.3795 kg

DRUGS (2)
  1. AVONEX [Suspect]
     Indication: MULTIPLE SCLEROSIS
     Dates: start: 19990101
  2. BACLOFEN [Concomitant]

REACTIONS (7)
  - BURNING SENSATION [None]
  - HIATUS HERNIA [None]
  - INJECTION SITE BURNING [None]
  - INJECTION SITE PAIN [None]
  - JOINT STIFFNESS [None]
  - MULTIPLE SCLEROSIS [None]
  - MULTIPLE SCLEROSIS RELAPSE [None]
